FAERS Safety Report 5463180-5 (Version None)
Quarter: 2007Q3

REPORT INFORMATION
  Report Type: 
  Country: None (occurrence: None)
  Receive Date: 20070920
  Receipt Date: 20070914
  Transmission Date: 20080115
  Serious: Yes (Hospitalization)
  Sender: FDA-Public Use
  Company Number: A0668368A

PATIENT
  Age: 61 Year
  Sex: Male
  Weight: 82.3 kg

DRUGS (9)
  1. ZOVIRAX [Suspect]
     Indication: ANTIVIRAL PROPHYLAXIS
     Dosage: 400MG THREE TIMES PER DAY
     Route: 048
     Dates: start: 20070101
  2. DECADRON [Concomitant]
     Dosage: 40U UNKNOWN
     Route: 048
     Dates: start: 20070101
  3. CHEMOTHERAPY [Concomitant]
  4. DEPAKOTE ER [Concomitant]
     Dosage: 500MG UNKNOWN
     Route: 065
     Dates: start: 20070601
  5. ACYCLOVIR [Concomitant]
     Dosage: 400U THREE TIMES PER DAY
     Route: 065
  6. FOLIC ACID [Concomitant]
     Dosage: 1MG PER DAY
     Route: 048
     Dates: start: 20070101
  7. BACTRIM [Concomitant]
     Route: 048
     Dates: start: 20070101
  8. MULTI-VITAMIN [Concomitant]
     Dosage: 1TAB PER DAY
     Route: 048
     Dates: start: 20070101
  9. OSCAL D [Concomitant]
     Route: 048

REACTIONS (5)
  - CONVULSION [None]
  - DYSARTHRIA [None]
  - FATIGUE [None]
  - LOSS OF CONSCIOUSNESS [None]
  - TREMOR [None]
